FAERS Safety Report 24587247 (Version 1)
Quarter: 2024Q4

REPORT INFORMATION
  Report Type: Other
  Country: NL (occurrence: NL)
  Receive Date: 20241107
  Receipt Date: 20241107
  Transmission Date: 20250115
  Serious: Yes (Other)
  Sender: GLENMARK
  Company Number: None

PATIENT

DRUGS (2)
  1. TOPIRAMATE [Suspect]
     Active Substance: TOPIRAMATE
     Indication: Post-traumatic stress disorder
     Dosage: 100 MILLIGRAM, OD, 1 MAAL PER DAG 1 STUK
     Route: 065
     Dates: start: 20240913
  2. TOPIRAMATE [Suspect]
     Active Substance: TOPIRAMATE
     Dosage: UNK; DOSE DECREASED
     Route: 065

REACTIONS (2)
  - Hallucination [Recovered/Resolved]
  - Sedation [Recovered/Resolved]
